FAERS Safety Report 15290875 (Version 1)
Quarter: 2018Q3

REPORT INFORMATION
  Report Type: Spontaneous
  Country: US (occurrence: US)
  Receive Date: 20180817
  Receipt Date: 20180817
  Transmission Date: 20181010
  Serious: No
  Sender: FDA-Public Use
  Company Number: US-AMNEAL PHARMACEUTICALS COMPANY GMBH-2018AGH00008

PATIENT
  Age: 75 Year
  Sex: Male

DRUGS (15)
  1. CARVEDILOL. [Concomitant]
     Active Substance: CARVEDILOL
  2. LISINOPRIL. [Concomitant]
     Active Substance: LISINOPRIL
  3. FUROSEMIDE. [Suspect]
     Active Substance: FUROSEMIDE
     Dosage: UNK
     Route: 065
  4. PAROXETINE. [Concomitant]
     Active Substance: PAROXETINE
  5. KORLYM [Suspect]
     Active Substance: MIFEPRISTONE
     Indication: CUSHING^S SYNDROME
     Dosage: 300 MG, 1X/DAY
     Route: 065
     Dates: start: 201602, end: 201603
  6. AMITRIPTYLINE [Concomitant]
     Active Substance: AMITRIPTYLINE
  7. VITAMIN D [Concomitant]
     Active Substance: CHOLECALCIFEROL
  8. KORLYM [Suspect]
     Active Substance: MIFEPRISTONE
     Dosage: 600 MG, 1X/DAY
     Route: 065
     Dates: start: 201603
  9. HYDROCODONE BITARTRATE AND ACETAMINOPHEN [Concomitant]
     Active Substance: ACETAMINOPHEN\HYDROCODONE BITARTRATE
  10. LEVOTHYROXINE. [Concomitant]
     Active Substance: LEVOTHYROXINE
  11. PRAVASTATIN. [Concomitant]
     Active Substance: PRAVASTATIN
     Dosage: UNK
  12. INVOKANA [Concomitant]
     Active Substance: CANAGLIFLOZIN
  13. ASA [Concomitant]
     Active Substance: ASPIRIN
  14. BUSPAR [Concomitant]
     Active Substance: BUSPIRONE HYDROCHLORIDE
  15. MULTIVITAMIN [Concomitant]
     Active Substance: VITAMINS

REACTIONS (1)
  - Hypokalaemia [Unknown]

NARRATIVE: CASE EVENT DATE: 20180627
